FAERS Safety Report 16119023 (Version 1)
Quarter: 2019Q1

REPORT INFORMATION
  Report Type: Spontaneous
  Country: SE (occurrence: SE)
  Receive Date: 20190326
  Receipt Date: 20190326
  Transmission Date: 20190418
  Serious: Yes (Other)
  Sender: FDA-Public Use
  Company Number: SE-TEVA-2019-SE-1028187

PATIENT
  Age: 80 Year
  Sex: Female

DRUGS (12)
  1. SPIRONOLACTONE. [Concomitant]
     Active Substance: SPIRONOLACTONE
  2. PARAFLEX [Concomitant]
     Active Substance: CHLORZOXAZONE
     Dosage: 1 VB, MAX 4/DAY
     Dates: end: 20190208
  3. AERIUS 5 MG FILMDRAGERAD TABLETT [Concomitant]
     Dosage: 1 VB, MAX 4/DAY
  4. ELIQUIS 2,5 MG FILMDRAGERAD TABLETT [Concomitant]
     Dosage: 5 MILLIGRAM DAILY;
     Dates: start: 201902
  5. ALVEDON 500 MG FILMDRAGERAD TABLETT [Concomitant]
     Dosage: 3000 MILLIGRAM DAILY;
  6. RAMIPRIL. [Suspect]
     Active Substance: RAMIPRIL
     Indication: CARDIAC FAILURE
     Dosage: 2.5 MILLIGRAM DAILY;
     Route: 048
     Dates: start: 20190207, end: 20190213
  7. MOVICOL [Concomitant]
     Active Substance: POLYETHYLENE GLYCOL 3350\POTASSIUM CHLORIDE\SODIUM BICARBONATE\SODIUM CHLORIDE
     Dosage: 1-3 VB, MAX 3/DAY
  8. FOLACIN 1 MG TABLETT [Concomitant]
  9. FURIX [Concomitant]
     Active Substance: FUROSEMIDE
     Dosage: 2 ML X 3
     Route: 042
     Dates: start: 201902
  10. OXYNORM 5 MG KAPSEL, H?RD [Concomitant]
     Dosage: 1 VB, MAX 3/DAY
  11. BISOPROLOL [Concomitant]
     Active Substance: BISOPROLOL
     Dosage: 2.5 MILLIGRAM DAILY;
     Dates: start: 20190207
  12. METHOTREXATE. [Concomitant]
     Active Substance: METHOTREXATE

REACTIONS (3)
  - Idiosyncratic drug reaction [Recovering/Resolving]
  - Pruritus [Recovering/Resolving]
  - Rash morbilliform [Recovering/Resolving]

NARRATIVE: CASE EVENT DATE: 20190211
